FAERS Safety Report 5107939-2 (Version None)
Quarter: 2006Q3

REPORT INFORMATION
  Report Type: 
  Country: None (occurrence: None)
  Receive Date: 20060914
  Receipt Date: 20060831
  Transmission Date: 20061208
  Serious: Yes (Death)
  Sender: FDA-Public Use
  Company Number: 2006JP003000

PATIENT
  Age: 92 Year
  Sex: Female

DRUGS (3)
  1. VESICARE [Suspect]
     Dosage: 5 MG, ORAL
     Route: 048
     Dates: end: 20060822
  2. BLOPRESS (CANDESARTAN CILEXETIL) [Concomitant]
  3. NEUQUINON (UBIDECARENONE) [Concomitant]

REACTIONS (1)
  - ATRIOVENTRICULAR BLOCK THIRD DEGREE [None]
